FAERS Safety Report 24309955 (Version 2)
Quarter: 2024Q3

REPORT INFORMATION
  Report Type: Spontaneous
  Country: US (occurrence: US)
  Receive Date: 20240912
  Receipt Date: 20240926
  Transmission Date: 20241016
  Serious: No
  Sender: HETERO
  Company Number: US-HETERO-HET2024US02932

PATIENT
  Sex: Male
  Weight: 219 kg

DRUGS (1)
  1. FINASTERIDE [Suspect]
     Active Substance: FINASTERIDE
     Indication: Alopecia
     Dosage: 1 MILLIGRAM, QD
     Route: 048
     Dates: start: 20240708

REACTIONS (1)
  - Drug ineffective [Unknown]
